FAERS Safety Report 10228915 (Version 8)
Quarter: 2017Q3

REPORT INFORMATION
  Report Type: Spontaneous
  Country: US (occurrence: US)
  Receive Date: 20140610
  Receipt Date: 20170818
  Transmission Date: 20171127
  Serious: Yes (Hospitalization, Other)
  Sender: FDA-Public Use
  Company Number: US-GLAXOSMITHKLINE-A0971170A

PATIENT
  Age: 82 Year
  Sex: Female

DRUGS (11)
  1. ADVAIR HFA [Suspect]
     Active Substance: FLUTICASONE PROPIONATE\SALMETEROL XINAFOATE
     Dosage: UNK
     Dates: start: 200303
  2. VALIUM [Concomitant]
     Active Substance: DIAZEPAM
  3. CALCIUM CARBONATE. [Concomitant]
     Active Substance: CALCIUM CARBONATE
  4. KEFLEX [Concomitant]
     Active Substance: CEPHALEXIN
  5. ADVAIR HFA [Suspect]
     Active Substance: FLUTICASONE PROPIONATE\SALMETEROL XINAFOATE
     Indication: PNEUMONIA
     Dosage: UNK
  6. ADVAIR HFA [Suspect]
     Active Substance: FLUTICASONE PROPIONATE\SALMETEROL XINAFOATE
     Dosage: 1 PUFF(S), BID
  7. ALBUTEROL. [Concomitant]
     Active Substance: ALBUTEROL
  8. ADVAIR HFA [Suspect]
     Active Substance: FLUTICASONE PROPIONATE\SALMETEROL XINAFOATE
     Indication: ASTHMA
     Dosage: 1 PUFF(S), BID
     Route: 055
     Dates: start: 20010103
  9. ADVAIR HFA [Suspect]
     Active Substance: FLUTICASONE PROPIONATE\SALMETEROL XINAFOATE
     Dosage: UNK, U
     Route: 055
  10. JANUVIA [Concomitant]
     Active Substance: SITAGLIPTIN PHOSPHATE
  11. ARIMIDEX [Concomitant]
     Active Substance: ANASTROZOLE

REACTIONS (20)
  - Chronic lymphocytic leukaemia [Not Recovered/Not Resolved]
  - Diabetes mellitus [Not Recovered/Not Resolved]
  - Spleen operation [Recovering/Resolving]
  - Chemotherapy [Unknown]
  - Leukaemia [Not Recovered/Not Resolved]
  - Eye inflammation [Unknown]
  - Neoplasm malignant [Unknown]
  - Viral infection [Unknown]
  - Drug ineffective [Unknown]
  - Product quality issue [Unknown]
  - Dyspnoea [Not Recovered/Not Resolved]
  - Lymphoma [Not Recovered/Not Resolved]
  - Asthma [Unknown]
  - Eye pain [Unknown]
  - Splenomegaly [Recovering/Resolving]
  - Surgery [Unknown]
  - Breast cancer [Recovered/Resolved]
  - Mastectomy [Unknown]
  - Splenectomy [Unknown]
  - Malaise [Unknown]

NARRATIVE: CASE EVENT DATE: 2007
